FAERS Safety Report 4880961-7 (Version None)
Quarter: 2005Q4

REPORT INFORMATION
  Report Type: 
  Country: None (occurrence: None)
  Receive Date: 20051223
  Receipt Date: 20051006
  Transmission Date: 20060501
  Serious: No
  Sender: FDA-Public Use
  Company Number: 05P-163-0312946-00

PATIENT
  Age: 70 Year
  Sex: Female
  Weight: 63.5036 kg

DRUGS (4)
  1. HUMIRA [Suspect]
     Indication: RHEUMATOID ARTHRITIS
     Dosage: 40 MG, 1 IN 2 WK, SUBCUTANEOUS
     Route: 058
     Dates: start: 20050819, end: 20051012
  2. METHOTREXATE [Concomitant]
  3. PREDNISONE [Concomitant]
  4. HYDROXYCHLOROQUINE PHOSPHATE [Concomitant]

REACTIONS (4)
  - FEELING HOT [None]
  - RASH [None]
  - RASH MACULAR [None]
  - SKIN WRINKLING [None]
